FAERS Safety Report 13454324 (Version 1)
Quarter: 2017Q2

REPORT INFORMATION
  Report Type: Spontaneous
  Country: US (occurrence: US)
  Receive Date: 20170418
  Receipt Date: 20170418
  Transmission Date: 20170830
  Serious: No
  Sender: FDA-Public Use
  Company Number: US-ALLERGAN-1709086US

PATIENT
  Sex: Female

DRUGS (1)
  1. LUMIGAN [Suspect]
     Active Substance: BIMATOPROST
     Indication: GLAUCOMA
     Dosage: 2 GTT, UNK
     Route: 047
     Dates: end: 20170307

REACTIONS (8)
  - Cough [Unknown]
  - Viral upper respiratory tract infection [Unknown]
  - Oropharyngeal pain [Unknown]
  - Ageusia [Not Recovered/Not Resolved]
  - Upper respiratory tract irritation [Unknown]
  - Rhinorrhoea [Unknown]
  - Pyrexia [Unknown]
  - Hyposmia [Not Recovered/Not Resolved]

NARRATIVE: CASE EVENT DATE: 2017
